FAERS Safety Report 5382832-9 (Version None)
Quarter: 2007Q3

REPORT INFORMATION
  Report Type: 
  Country: None (occurrence: None)
  Receive Date: 20070710
  Receipt Date: 20070705
  Transmission Date: 20080115
  Serious: Yes (Other)
  Sender: FDA-Public Use
  Company Number: BR-AVENTIS-200715928GDDC

PATIENT
  Age: 48 Year
  Sex: Female
  Weight: 85 kg

DRUGS (3)
  1. ALLEGRA-D 12 HOUR [Suspect]
     Indication: SINUSITIS
     Dosage: DOSE QUANTITY: 1
     Route: 048
     Dates: start: 20070621, end: 20070627
  2. LEVOXIN [Concomitant]
     Indication: SINUSITIS
     Dosage: DOSE QUANTITY: 1
     Route: 048
     Dates: start: 20070622, end: 20070627
  3. ACETYLCYSTEINE [Concomitant]
     Route: 048
     Dates: start: 20070620

REACTIONS (7)
  - ABDOMINAL DISTENSION [None]
  - ABDOMINAL PAIN [None]
  - GASTROINTESTINAL DISORDER [None]
  - GASTROOESOPHAGEAL REFLUX DISEASE [None]
  - HICCUPS [None]
  - OESOPHAGITIS [None]
  - RESPIRATORY FAILURE [None]
